FAERS Safety Report 4729078-2 (Version None)
Quarter: 2005Q3

REPORT INFORMATION
  Report Type: 
  Country: None (occurrence: None)
  Receive Date: 20050729
  Receipt Date: 20050316
  Transmission Date: 20060218
  Serious: No
  Sender: FDA-Public Use
  Company Number: US-GLAXOSMITHKLINE-A0550083A

PATIENT
  Age: 64 Year
  Sex: Female

DRUGS (3)
  1. IMITREX [Suspect]
     Indication: MIGRAINE
     Dosage: 25MG AS REQUIRED
     Route: 048
  2. ASPIRIN [Concomitant]
  3. MIGRAINE MEDICATION [Concomitant]

REACTIONS (5)
  - ABDOMINAL DISCOMFORT [None]
  - HEAD DISCOMFORT [None]
  - ORAL PRURITUS [None]
  - PARAESTHESIA [None]
  - TINNITUS [None]
